FAERS Safety Report 5875679-8 (Version None)
Quarter: 2008Q3

REPORT INFORMATION
  Report Type: 
  Country: None (occurrence: None)
  Receive Date: 20080904
  Receipt Date: 20080825
  Transmission Date: 20090109
  Serious: Yes (Death)
  Sender: FDA-Public Use
  Company Number: 2008AL008328

PATIENT
  Age: 86 Year
  Sex: Male
  Weight: 67.586 kg

DRUGS (16)
  1. DIGOXIN [Suspect]
     Indication: ATRIAL FIBRILLATION
     Dosage: 0.125MG QOD PO
     Route: 048
  2. WARFARIN SODIUM [Concomitant]
  3. IPRATROPIUM BROMIDE [Concomitant]
  4. ALBUTEROL SULFATE [Concomitant]
  5. COREG [Concomitant]
  6. GLIPIZIDE [Concomitant]
  7. TUMS [Concomitant]
  8. LISINOPRIL [Concomitant]
  9. NITRO-DUR [Concomitant]
  10. COMBIVENT [Concomitant]
  11. NEPHROCAPS [Concomitant]
  12. LIPITOR [Concomitant]
  13. PREDNISOLONE ACETATE [Concomitant]
  14. DARBEPOETIN ALPHA ALBUMIN [Concomitant]
  15. XALATAN [Concomitant]
  16. BETOPTIC S [Concomitant]

REACTIONS (8)
  - ARRHYTHMIA [None]
  - ASTHMA [None]
  - CHRONIC OBSTRUCTIVE PULMONARY DISEASE [None]
  - DYSPNOEA [None]
  - LOSS OF CONSCIOUSNESS [None]
  - SUDDEN DEATH [None]
  - THERAPEUTIC AGENT TOXICITY [None]
  - WHEEZING [None]
